FAERS Safety Report 10730284 (Version 1)
Quarter: 2015Q1

REPORT INFORMATION
  Report Type: Spontaneous
  Country: US (occurrence: None)
  Receive Date: 20150121
  Receipt Date: 20150121
  Transmission Date: 20150721
  Serious: Yes (Other)
  Sender: FDA-Public Use
  Company Number: None

PATIENT
  Age: 53 Year
  Sex: Female
  Weight: 50.8 kg

DRUGS (1)
  1. DULCOLAX [Suspect]
     Active Substance: BISACODYL OR DOCUSATE SODIUM
     Indication: COLONOSCOPY
     Dosage: 2 PILLS AT BEDTIME TAKEN BY MOUTH
     Route: 048
     Dates: start: 20150119, end: 20150120

REACTIONS (5)
  - Gastrointestinal pain [None]
  - Fear [None]
  - Nausea [None]
  - Tremor [None]
  - Hyperhidrosis [None]

NARRATIVE: CASE EVENT DATE: 20150120
